FAERS Safety Report 13022708 (Version 2)
Quarter: 2017Q1

REPORT INFORMATION
  Report Type: Spontaneous
  Country: US (occurrence: US)
  Receive Date: 20161213
  Receipt Date: 20170201
  Transmission Date: 20170428
  Serious: Yes (Hospitalization, Other)
  Sender: FDA-Public Use
  Company Number: US-PFIZER INC-2016575331

PATIENT
  Age: 70 Year
  Sex: Female
  Weight: 79.38 kg

DRUGS (13)
  1. NAMENDA [Concomitant]
     Active Substance: MEMANTINE HYDROCHLORIDE
     Indication: DEMENTIA
     Dosage: 28MG SR IN THE MORNING
  2. TRAZODONE [Concomitant]
     Active Substance: TRAZODONE HYDROCHLORIDE
     Indication: ANXIETY
     Dosage: 50 MG, IN THE EVENING
  3. XANAX [Concomitant]
     Active Substance: ALPRAZOLAM
     Indication: ANXIETY
     Dosage: 0.25 MG, ONCE IN THE EVENING
  4. DILAUDID [Concomitant]
     Active Substance: HYDROMORPHONE HYDROCHLORIDE
     Indication: PAIN
     Dosage: 4 ONE IN THE MORNING AND ONE IN THE EVENING
  5. PRILOSEC [Concomitant]
     Active Substance: OMEPRAZOLE MAGNESIUM
     Indication: DYSPEPSIA
  6. LYRICA [Suspect]
     Active Substance: PREGABALIN
     Indication: FIBROMYALGIA
     Dosage: 300 MG, TWICE A DAY
     Route: 048
  7. SAVELLA [Concomitant]
     Active Substance: MILNACIPRAN HYDROCHLORIDE
     Indication: FIBROMYALGIA
     Dosage: 100 MG, TWICE A DAY
  8. PRILOSEC [Concomitant]
     Active Substance: OMEPRAZOLE MAGNESIUM
     Indication: ULCER
  9. ARICEPT [Concomitant]
     Active Substance: DONEPEZIL HYDROCHLORIDE
     Indication: DEMENTIA
     Dosage: 23MG ONCE IN THE EVENING
  10. PRILOSEC [Concomitant]
     Active Substance: OMEPRAZOLE MAGNESIUM
     Indication: DYSPEPSIA
     Dosage: 40 MG, ONCE IN THE A.M.
  11. MOBIC [Concomitant]
     Active Substance: MELOXICAM
     Dosage: 15 MG, ONCE A DAY
  12. ZOCOR [Concomitant]
     Active Substance: SIMVASTATIN
     Indication: SLEEP DISORDER
     Dosage: 20 MG, ONCE IN THE EVENING
  13. CYMBALTA [Concomitant]
     Active Substance: DULOXETINE HYDROCHLORIDE
     Dosage: 60 MG, TWICE A DAY

REACTIONS (13)
  - Mental impairment [Unknown]
  - Nausea [Unknown]
  - Pain [Unknown]
  - Prescribed overdose [Unknown]
  - Apparent death [Unknown]
  - Dizziness [Unknown]
  - Circulatory collapse [Unknown]
  - Dementia [Unknown]
  - Abasia [Unknown]
  - Feeding disorder [Unknown]
  - Mutism [Unknown]
  - Malaise [Unknown]
  - Activities of daily living impaired [Unknown]

NARRATIVE: CASE EVENT DATE: 201611
